FAERS Safety Report 8729057 (Version 3)
Quarter: 2013Q1

REPORT INFORMATION
  Report Type: Spontaneous
  Country: US (occurrence: US)
  Receive Date: 20120817
  Receipt Date: 20130315
  Transmission Date: 20140127
  Serious: Yes (Other)
  Sender: FDA-Public Use
  Company Number: US-BRISTOL-MYERS SQUIBB COMPANY-16360794

PATIENT
  Age: 61 Year
  Sex: Female
  Weight: 141.4 kg

DRUGS (9)
  1. SPRYCEL [Suspect]
     Indication: CHRONIC MYELOID LEUKAEMIA
     Dosage: 50MG/1 DAY: MARCH 2012
     Route: 048
     Dates: start: 201110
  2. OXYCONTIN [Concomitant]
     Dosage: TAB:SR
     Route: 048
  3. SYMBICORT [Concomitant]
  4. ALBUTEROL [Concomitant]
  5. BENADRYL [Concomitant]
     Dosage: TAB
     Route: 048
  6. VENTOLIN INHALER [Concomitant]
     Dosage: 1DF: 2PUFFS PRN.
     Route: 055
  7. SYMBICORT [Concomitant]
     Dosage: 1DF: 2 PUFFS EVRY 12HRS.
     Route: 055
  8. EXCEDRIN MIGRAINE TABS [Concomitant]
     Dosage: EXCEDRIN MIGRAINE TABS 250-250-65MG- PRN
     Route: 048
  9. TYLENOL EXTRA STRENGTH [Concomitant]
     Dosage: TAB: PRN
     Route: 048

REACTIONS (29)
  - Retinal haemorrhage [Recovering/Resolving]
  - Cardiac disorder [Unknown]
  - Generalised oedema [Unknown]
  - Bronchospasm [Unknown]
  - Chills [Unknown]
  - Headache [Unknown]
  - Muscle spasms [Unknown]
  - Insomnia [Unknown]
  - Nausea [Unknown]
  - Urticaria [Unknown]
  - Weight increased [Unknown]
  - Anaemia [Unknown]
  - Hypoaesthesia [Unknown]
  - Peripheral coldness [Unknown]
  - Skin mass [Unknown]
  - Memory impairment [Unknown]
  - Disturbance in attention [Unknown]
  - Fatigue [Unknown]
  - Conjunctivitis [Unknown]
  - Dyspnoea exertional [Unknown]
  - Constipation [Recovering/Resolving]
  - Dysuria [Unknown]
  - Upper respiratory tract infection [Unknown]
  - Stomatitis [Recovering/Resolving]
  - Dysphagia [Recovering/Resolving]
  - Vomiting [Recovering/Resolving]
  - Diarrhoea [Recovering/Resolving]
  - Gastrointestinal haemorrhage [Recovering/Resolving]
  - Dyspepsia [Recovering/Resolving]
